FAERS Safety Report 5291046-2 (Version None)
Quarter: 2007Q2

REPORT INFORMATION
  Report Type: 
  Country: None (occurrence: None)
  Receive Date: 20070409
  Receipt Date: 20070208
  Transmission Date: 20071010
  Serious: Yes (Other)
  Sender: FDA-Public Use
  Company Number: US-AVENTIS-200710769US

PATIENT
  Sex: Male
  Weight: 86.36 kg

DRUGS (5)
  1. LOVENOX [Suspect]
     Dosage: DOSE: UNK
     Dates: start: 20070127, end: 20070101
  2. LOVENOX [Suspect]
     Dosage: DOSE: UNK
     Dates: start: 20070127, end: 20070101
  3. LOTREL                             /01289101/ [Concomitant]
     Dosage: DOSE: UNK
  4. TALWIN                             /00052101/ [Concomitant]
     Dosage: DOSE: UNK
  5. LASIX [Concomitant]
     Dosage: DOSE: UNK

REACTIONS (1)
  - SPINAL HAEMATOMA [None]
